FAERS Safety Report 13979745 (Version 2)
Quarter: 2017Q3

REPORT INFORMATION
  Report Type: Report from Study
  Country: None (occurrence: US)
  Receive Date: 20170914
  Receipt Date: 20170918
  Transmission Date: 20171128
  Serious: Yes (Hospitalization)
  Sender: FDA-Public Use
  Company Number: US-ABBVIE-17P-163-2094261-00

PATIENT
  Age: 42 Year
  Sex: Male
  Weight: 165.8 kg

DRUGS (28)
  1. VENETOCLAX. [Suspect]
     Active Substance: VENETOCLAX
     Route: 048
     Dates: start: 20170713
  2. RITUXIMAB. [Concomitant]
     Active Substance: RITUXIMAB
     Indication: DIFFUSE LARGE B-CELL LYMPHOMA
     Route: 042
     Dates: start: 20170714
  3. RITUXIMAB. [Concomitant]
     Active Substance: RITUXIMAB
     Route: 042
     Dates: start: 20170802
  4. IFOSFAMIDE. [Concomitant]
     Active Substance: IFOSFAMIDE
     Indication: DIFFUSE LARGE B-CELL LYMPHOMA
     Dosage: CONTINUOUS INFUSION OVER 24 HOURS DAY 2 AND DAY 3
     Route: 042
     Dates: start: 20170714
  5. ETOPOSIDE. [Concomitant]
     Active Substance: ETOPOSIDE
     Route: 042
     Dates: start: 20170802
  6. CARBOPLATIN. [Concomitant]
     Active Substance: CARBOPLATIN
     Route: 042
     Dates: start: 20170825
  7. IFOSFAMIDE. [Concomitant]
     Active Substance: IFOSFAMIDE
     Route: 042
     Dates: start: 20170825
  8. ETOPOSIDE. [Concomitant]
     Active Substance: ETOPOSIDE
     Indication: DIFFUSE LARGE B-CELL LYMPHOMA
     Route: 042
     Dates: start: 20170713
  9. MESNA. [Concomitant]
     Active Substance: MESNA
     Indication: DIFFUSE LARGE B-CELL LYMPHOMA
     Dosage: 4 HOURS AFTER COMPLETION OF IFOSFAMIDE ON DAY 3
     Route: 042
     Dates: start: 20170804
  10. LISINOPRIL. [Concomitant]
     Active Substance: LISINOPRIL
     Indication: PRODUCT USED FOR UNKNOWN INDICATION
     Route: 048
  11. VENETOCLAX. [Suspect]
     Active Substance: VENETOCLAX
     Route: 048
     Dates: start: 20170824
  12. ACETAMINOPHEN. [Concomitant]
     Active Substance: ACETAMINOPHEN
     Indication: PRODUCT USED FOR UNKNOWN INDICATION
     Route: 048
  13. POLYETHYLENE GLYCOL [Concomitant]
     Active Substance: POLYETHYLENE GLYCOLS
     Indication: PRODUCT USED FOR UNKNOWN INDICATION
     Route: 048
  14. RITUXIMAB. [Concomitant]
     Active Substance: RITUXIMAB
     Route: 042
     Dates: start: 20170824
  15. ACYCLOVIR. [Concomitant]
     Active Substance: ACYCLOVIR
     Indication: PRODUCT USED FOR UNKNOWN INDICATION
     Route: 048
  16. CARBOPLATIN. [Concomitant]
     Active Substance: CARBOPLATIN
     Indication: DIFFUSE LARGE B-CELL LYMPHOMA
     Route: 042
     Dates: start: 20170714
  17. MESNA. [Concomitant]
     Active Substance: MESNA
     Dosage: 4 HOURS AFTER COMPLETION OF IFOSFAMIDE ON DAY 3.
     Route: 042
     Dates: start: 20170826
  18. HYDROCHLOROTHIAZIDE. [Concomitant]
     Active Substance: HYDROCHLOROTHIAZIDE
     Indication: PRODUCT USED FOR UNKNOWN INDICATION
     Route: 048
  19. HEPARIN [Concomitant]
     Active Substance: HEPARIN SODIUM
     Indication: PRODUCT USED FOR UNKNOWN INDICATION
     Route: 058
  20. DIPHENHYDRAMINE. [Concomitant]
     Active Substance: DIPHENHYDRAMINE
     Indication: PRODUCT USED FOR UNKNOWN INDICATION
     Route: 048
  21. CARBOPLATIN. [Concomitant]
     Active Substance: CARBOPLATIN
     Route: 042
     Dates: start: 20170802
  22. ETOPOSIDE. [Concomitant]
     Active Substance: ETOPOSIDE
     Route: 042
     Dates: start: 20170824
  23. MESNA. [Concomitant]
     Active Substance: MESNA
     Dosage: 4 HOURS AFTER COMPLETION OF IFOSFAMIDE ON DAY 3
     Route: 042
     Dates: start: 20170816
  24. ONDANSETRON [Concomitant]
     Active Substance: ONDANSETRON
     Indication: PRODUCT USED FOR UNKNOWN INDICATION
     Route: 042
  25. ALLOPURINOL. [Concomitant]
     Active Substance: ALLOPURINOL
     Indication: PRODUCT USED FOR UNKNOWN INDICATION
     Route: 048
  26. VENETOCLAX. [Suspect]
     Active Substance: VENETOCLAX
     Indication: DIFFUSE LARGE B-CELL LYMPHOMA
     Route: 048
     Dates: start: 20170702
  27. IFOSFAMIDE. [Concomitant]
     Active Substance: IFOSFAMIDE
     Route: 042
     Dates: start: 20170802
  28. SULFAMETHOXAZOLE AND TRIMETHOPRIM [Concomitant]
     Active Substance: SULFAMETHOXAZOLE\TRIMETHOPRIM
     Indication: PRODUCT USED FOR UNKNOWN INDICATION
     Dosage: 800\160MG MON, WED, FRI
     Route: 048

REACTIONS (2)
  - Cholelithiasis [Unknown]
  - Gallbladder enlargement [Unknown]

NARRATIVE: CASE EVENT DATE: 20170904
